FAERS Safety Report 8885388 (Version 3)
Quarter: 2012Q4

REPORT INFORMATION
  Report Type: 
  Country: PR (occurrence: PR)
  Receive Date: 20121105
  Receipt Date: 20121126
  Transmission Date: 20130627
  Serious: Yes (Hospitalization, Other)
  Sender: FDA-Public Use
  Company Number: PR-ABBOTT-12P-131-1002374-00

PATIENT
  Age: 22 Year
  Sex: Male

DRUGS (4)
  1. HUMIRA [Suspect]
     Indication: CROHN^S DISEASE
     Route: 058
     Dates: start: 2010, end: 201209
  2. HUMIRA [Suspect]
  3. ASACOL [Concomitant]
  4. ASACOL [Concomitant]

REACTIONS (4)
  - Hospitalisation [Unknown]
  - Nasopharyngitis [Unknown]
  - Injury [Unknown]
  - Ileal perforation [Unknown]
